FAERS Safety Report 15606925 (Version 1)
Quarter: 2018Q4

REPORT INFORMATION
  Report Type: Spontaneous
  Country: US (occurrence: US)
  Receive Date: 20181111
  Receipt Date: 20181111
  Transmission Date: 20190205
  Serious: Yes (Other)
  Sender: FDA-Public Use
  Company Number: None

PATIENT
  Age: 42 Year
  Sex: Female
  Weight: 65.7 kg

DRUGS (25)
  1. HYDROCHLOROTHIAZIDE. [Concomitant]
     Active Substance: HYDROCHLOROTHIAZIDE
  2. METFORMIN HCL [Concomitant]
     Active Substance: METFORMIN HYDROCHLORIDE
  3. ALBUTEROL/IPRATROPIUM BROMIDE [Concomitant]
     Active Substance: ALBUTEROL\IPRATROPIUM BROMIDE
  4. ADVAIR DISKUS [Concomitant]
     Active Substance: FLUTICASONE PROPIONATE\SALMETEROL XINAFOATE
  5. ALLOPURINOL. [Concomitant]
     Active Substance: ALLOPURINOL
  6. CARAFATE [Concomitant]
     Active Substance: SUCRALFATE
  7. OMEPRAZOLE. [Concomitant]
     Active Substance: OMEPRAZOLE
  8. VITAMIN D3 [Concomitant]
     Active Substance: CHOLECALCIFEROL
  9. ATORVASTATIN [Concomitant]
     Active Substance: ATORVASTATIN
  10. DYMISTA [Concomitant]
     Active Substance: AZELASTINE HYDROCHLORIDE\FLUTICASONE PROPIONATE
  11. APTIOM [Concomitant]
     Active Substance: ESLICARBAZEPINE ACETATE
  12. ASPIRIN. [Concomitant]
     Active Substance: ASPIRIN
  13. VITAMIN [Concomitant]
     Active Substance: VITAMINS
  14. DIGOXIN. [Concomitant]
     Active Substance: DIGOXIN
  15. FLOVENT HFA [Concomitant]
     Active Substance: FLUTICASONE PROPIONATE
  16. ATROVENT HFA [Concomitant]
     Active Substance: IPRATROPIUM BROMIDE
  17. BYDUREON [Concomitant]
     Active Substance: EXENATIDE
  18. CYCLOBENZAPRINE. [Concomitant]
     Active Substance: CYCLOBENZAPRINE
  19. VITAMIN D3 [Concomitant]
     Active Substance: CHOLECALCIFEROL
  20. DEPO-PROVERA [Concomitant]
     Active Substance: MEDROXYPROGESTERONE ACETATE
  21. METOPROLOL LSUCC ER [Concomitant]
  22. HUMALOG MIX75/25 KWIKPEN [Suspect]
     Active Substance: INSULIN LISPRO
     Indication: TYPE 2 DIABETES MELLITUS
     Dosage: ?          QUANTITY:55 UNITS;?
     Route: 030
     Dates: start: 20180704, end: 20181029
  23. LIDODERM [Concomitant]
     Active Substance: LIDOCAINE
  24. ROPINIROLE. [Concomitant]
     Active Substance: ROPINIROLE
  25. VITAMIN B12 [Concomitant]
     Active Substance: CYANOCOBALAMIN

REACTIONS (2)
  - Atrial fibrillation [None]
  - Condition aggravated [None]

NARRATIVE: CASE EVENT DATE: 20181029
